FAERS Safety Report 8887240 (Version 2)
Quarter: 2012Q4

REPORT INFORMATION
  Report Type: Report from Study
  Country: DE (occurrence: DE)
  Receive Date: 20121105
  Receipt Date: 20121114
  Transmission Date: 20130627
  Serious: Yes (Hospitalization)
  Sender: FDA-Public Use
  Company Number: DE-GILEAD-2012-0063846

PATIENT
  Age: 47 Year
  Sex: Male

DRUGS (6)
  1. TENOFOVIR DISOPROXIL FUMARATE [Suspect]
     Indication: CHRONIC HEPATITIS B
     Dosage: 245 mg, QD
     Route: 048
     Dates: start: 20120109
  2. PEGINTERFERON ALFA-2A [Suspect]
     Indication: CHRONIC HEPATITIS B
     Dosage: 180 ?g, QD
     Route: 058
     Dates: start: 20120109
  3. PANTOPRAZOLE [Concomitant]
     Indication: GASTRITIS
     Dosage: 20 mg, QD
     Route: 048
     Dates: start: 201101
  4. PANTOPRAZOLE [Concomitant]
     Indication: GASTROOESOPHAGEAL REFLUX DISEASE
  5. ELIDEL [Concomitant]
     Indication: LICHEN PLANUS
     Dosage: UNK
     Route: 061
     Dates: start: 20111103
  6. IBUPROFEN [Concomitant]
     Indication: HEADACHE
     Dosage: 600 mg, prn
     Route: 048
     Dates: start: 20120320

REACTIONS (1)
  - Gastroenteritis [Not Recovered/Not Resolved]
